FAERS Safety Report 9004482 (Version 1)
Quarter: 2012Q4

REPORT INFORMATION
  Report Type: Spontaneous
  Country: ES (occurrence: None)
  Receive Date: 20121227
  Receipt Date: 20121227
  Transmission Date: 20130627
  Serious: Yes (Hospitalization, Other)
  Sender: FDA-Public Use
  Company Number: 219901

PATIENT
  Age: 14 Month
  Sex: Male

DRUGS (3)
  1. INNOHEP (TINZAPARIN SODIUM) [Suspect]
     Route: 058
  2. DIGOXIN (DIGOXIN) [Concomitant]
  3. IRON SUPPLEMENTS (IRON) [Concomitant]

REACTIONS (4)
  - Intra-abdominal haematoma [None]
  - Gastrointestinal obstruction [None]
  - Volvulus [None]
  - Gastrointestinal haemorrhage [None]
